FAERS Safety Report 9149164 (Version 2)
Quarter: 2014Q1

REPORT INFORMATION
  Report Type: Spontaneous
  Country: US (occurrence: US)
  Receive Date: 20130308
  Receipt Date: 20140123
  Transmission Date: 20141002
  Serious: Yes (Hospitalization)
  Sender: FDA-Public Use
  Company Number: US-ENDO PHARMACEUTICALS INC.-OPCR20121823

PATIENT
  Age: 55 Year
  Sex: Male

DRUGS (10)
  1. OPANA ER [Suspect]
     Indication: PAIN
     Route: 048
     Dates: start: 20130624
  2. OPANA ER [Suspect]
     Route: 048
     Dates: start: 2012
  3. OPANA ER [Suspect]
     Route: 048
     Dates: start: 2012
  4. OPANA ER [Suspect]
     Route: 048
  5. OPANA ER [Suspect]
     Route: 048
     Dates: start: 20130624
  6. OPANA [Suspect]
     Indication: PRODUCT USED FOR UNKNOWN INDICATION
     Dosage: UNKNOWN
     Route: 048
  7. LISINOPRIL TABLETS [Concomitant]
     Indication: PRODUCT USED FOR UNKNOWN INDICATION
     Dosage: UNKNOWN
     Route: 048
  8. CARVEDILOL [Concomitant]
     Indication: PRODUCT USED FOR UNKNOWN INDICATION
     Dosage: UNKNOWN
     Route: 065
  9. MULTAQ [Concomitant]
     Indication: PRODUCT USED FOR UNKNOWN INDICATION
     Dosage: UNKNOWN
     Route: 065
  10. COLCRYS [Concomitant]
     Indication: PRODUCT USED FOR UNKNOWN INDICATION
     Dosage: UNKNOWN
     Route: 065

REACTIONS (7)
  - Infection [Recovered/Resolved]
  - Localised infection [Recovered/Resolved]
  - Gout [Not Recovered/Not Resolved]
  - Influenza [Unknown]
  - Malaise [Unknown]
  - Oxygen saturation decreased [Unknown]
  - Vomiting [Unknown]
